FAERS Safety Report 16685105 (Version 1)
Quarter: 2019Q3

REPORT INFORMATION
  Report Type: Spontaneous
  Country: GB (occurrence: GB)
  Receive Date: 20190808
  Receipt Date: 20190808
  Transmission Date: 20191004
  Serious: Yes (Hospitalization)
  Sender: FDA-Public Use
  Company Number: GB-TEVA-2019-GB-1090108

PATIENT
  Age: 88 Year
  Sex: Female

DRUGS (11)
  1. IRBESARTAN. [Suspect]
     Active Substance: IRBESARTAN
     Dosage: 300 MILLIGRAM FOR EVERY 1 DAYS
     Route: 048
     Dates: end: 20190614
  2. MOXONIDINE [Suspect]
     Active Substance: MOXONIDINE
     Dosage: 200 MICROGRAM
     Route: 048
     Dates: end: 20190614
  3. BENDROFLUMETHIAZIDE [Suspect]
     Active Substance: BENDROFLUMETHIAZIDE
     Dosage: 2.5 MILLIGRAM FOR EVERY 1 DAYS
     Route: 048
     Dates: end: 20190613
  4. BISOPROLOL [Concomitant]
     Active Substance: BISOPROLOL
     Dosage: 5 MILLIGRAM FOR EVERY 1 DAYS
     Route: 048
  5. LANSOPRAZOLE. [Suspect]
     Active Substance: LANSOPRAZOLE
     Dosage: 30 MILLIGRAM FOR EVERY 1 DAYS
     Route: 048
     Dates: end: 20190613
  6. CINNARIZINE [Concomitant]
     Active Substance: CINNARIZINE
     Dosage: 90 MILLIGRAM FOR EVERY 1 DAYS
     Route: 048
  7. METFORMIN [Concomitant]
     Active Substance: METFORMIN HYDROCHLORIDE
     Dosage: 1000 MILLIGRAM FOR EVERY 1 DAYS
     Route: 048
  8. PARACETAMOL [Concomitant]
     Active Substance: ACETAMINOPHEN
     Dosage: 1-2 FOUR TIMES A DAY AS NECESSARY
     Route: 048
  9. SIMVASTATIN. [Concomitant]
     Active Substance: SIMVASTATIN
     Dosage: EVERY NIGHT
     Route: 048
  10. LEVOTHYROXINE SODIUM. [Concomitant]
     Active Substance: LEVOTHYROXINE SODIUM
     Dosage: 75 MICROGRAM FOR EVERY 1 DAYS
     Route: 048
  11. BETAHISTINE [Concomitant]
     Active Substance: BETAHISTINE
     Dosage: 24 MILLIGRAM FOR EVERY 1 DAYS
     Route: 048
     Dates: start: 20190612, end: 20190613

REACTIONS (4)
  - Confusional state [Unknown]
  - Hyponatraemia [Recovering/Resolving]
  - Orthostatic hypotension [Recovered/Resolved]
  - Hypomagnesaemia [Recovered/Resolved]

NARRATIVE: CASE EVENT DATE: 20190613
